FAERS Safety Report 6965343-6 (Version None)
Quarter: 2010Q3

REPORT INFORMATION
  Report Type: 
  Country: None (occurrence: None)
  Receive Date: 20100903
  Receipt Date: 20100824
  Transmission Date: 20110219
  Serious: Yes (Other)
  Sender: FDA-Public Use
  Company Number: US-PFIZER INC-2010107343

PATIENT
  Sex: Female
  Weight: 110 kg

DRUGS (14)
  1. GEODON [Suspect]
     Indication: BIPOLAR DISORDER
     Dosage: 80 MG, 2X/DAY
     Route: 048
     Dates: start: 20000101
  2. TRILEPTAL [Concomitant]
     Indication: MENTAL DISORDER
     Dosage: UNK
  3. EFFEXOR [Concomitant]
     Indication: MENTAL DISORDER
     Dosage: UNK
  4. SYNTHROID [Concomitant]
     Dosage: UNK
  5. POTASSIUM [Concomitant]
     Dosage: UNK
  6. LASIX [Concomitant]
     Dosage: UNK
  7. SENOKOT [Concomitant]
     Dosage: UNK
  8. COLACE [Concomitant]
     Dosage: UNK
  9. LACTULOSE [Concomitant]
     Dosage: UNK
  10. AMITIZA [Concomitant]
     Dosage: UNK
  11. PRAVASTATIN [Concomitant]
     Indication: BLOOD CHOLESTEROL INCREASED
     Dosage: UNK
  12. CALCIUM [Concomitant]
     Dosage: UNK
  13. VITAMIN D [Concomitant]
     Dosage: UNK
  14. FISH OIL [Concomitant]
     Dosage: UNK

REACTIONS (3)
  - CONSTIPATION [None]
  - MEMORY IMPAIRMENT [None]
  - WEIGHT INCREASED [None]
